FAERS Safety Report 10024055 (Version 3)
Quarter: 2014Q2

REPORT INFORMATION
  Report Type: Spontaneous
  Country: JP (occurrence: JP)
  Receive Date: 20140320
  Receipt Date: 20140612
  Transmission Date: 20141212
  Serious: Yes (Other)
  Sender: FDA-Public Use
  Company Number: JP-PFIZER INC-2014077988

PATIENT
  Age: 5 Year
  Sex: Female

DRUGS (2)
  1. FOSPHENYTOIN SODIUM [Suspect]
     Indication: STATUS EPILEPTICUS
     Dosage: 22.5 MG/KG, ON DAY 1
  2. FOSPHENYTOIN SODIUM [Suspect]
     Dosage: 6.75 MG/KG, ON DAY 2

REACTIONS (2)
  - Drug ineffective [Unknown]
  - Anticonvulsant drug level below therapeutic [Unknown]
